FAERS Safety Report 16538674 (Version 1)
Quarter: 2019Q3

REPORT INFORMATION
  Report Type: Spontaneous
  Country: US (occurrence: US)
  Receive Date: 20190524
  Receipt Date: 20190524
  Transmission Date: 20191004
  Serious: Yes (Life-Threatening, Other)
  Sender: FDA-Public Use
  Company Number: None

PATIENT
  Age: 54 Year
  Sex: Female
  Weight: 90.72 kg

DRUGS (7)
  1. LYRICA [Suspect]
     Active Substance: PREGABALIN
     Indication: PAIN
     Dosage: ?          QUANTITY:150 MG MILLIGRAM(S);?
     Route: 048
     Dates: start: 201802, end: 201806
  2. ASPIRIN 81MG [Concomitant]
     Active Substance: ASPIRIN
  3. LYRICA [Suspect]
     Active Substance: PREGABALIN
     Indication: NEURALGIA
     Dosage: ?          QUANTITY:150 MG MILLIGRAM(S);?
     Route: 048
     Dates: start: 201802, end: 201806
  4. LYRICA [Suspect]
     Active Substance: PREGABALIN
     Indication: DIABETIC NEUROPATHY
     Dosage: ?          QUANTITY:150 MG MILLIGRAM(S);?
     Route: 048
     Dates: start: 201802, end: 201806
  5. BENADRYL [Concomitant]
     Active Substance: DIPHENHYDRAMINE HYDROCHLORIDE
  6. FLONASE [Concomitant]
     Active Substance: FLUTICASONE PROPIONATE
  7. LYRICA [Suspect]
     Active Substance: PREGABALIN
     Indication: HERPES ZOSTER
     Dosage: ?          QUANTITY:150 MG MILLIGRAM(S);?
     Route: 048
     Dates: start: 201802, end: 201806

REACTIONS (2)
  - Drug interaction [None]
  - Transient ischaemic attack [None]

NARRATIVE: CASE EVENT DATE: 20180520
